FAERS Safety Report 15320219 (Version 1)
Quarter: 2018Q3

REPORT INFORMATION
  Report Type: Spontaneous
  Country: US (occurrence: US)
  Receive Date: 20180827
  Receipt Date: 20180827
  Transmission Date: 20181010
  Serious: No
  Sender: FDA-Public Use
  Company Number: US-PFIZER INC-2017401514

PATIENT
  Age: 14 Year
  Sex: Male
  Weight: 46.72 kg

DRUGS (2)
  1. GENOTROPIN [Suspect]
     Active Substance: SOMATROPIN
     Indication: GROWTH HORMONE DEFICIENCY
     Dosage: 1.4 MG, 1X/DAY
     Dates: start: 201708
  2. GENOTROPIN [Suspect]
     Active Substance: SOMATROPIN
     Dosage: 2 MG, DAILY
     Dates: start: 20170820

REACTIONS (3)
  - Blood 25-hydroxycholecalciferol decreased [Unknown]
  - Product storage error [Unknown]
  - Drug administration error [Unknown]

NARRATIVE: CASE EVENT DATE: 20170915
